FAERS Safety Report 6255708-2 (Version None)
Quarter: 2009Q3

REPORT INFORMATION
  Report Type: 
  Country: None (occurrence: None)
  Receive Date: 20090701
  Receipt Date: 20090615
  Transmission Date: 20100115
  Serious: Yes (Hospitalization)
  Sender: FDA-Public Use
  Company Number: 2009007306

PATIENT
  Sex: Male

DRUGS (6)
  1. TREANDA [Suspect]
     Dosage: (175 MG, 175 MG/M2), INTRAVENOUS
     Route: 042
  2. RITUXIMAB (RITUXIMAB) [Suspect]
     Dosage: (975 MG, Q 4-WKS), INTRAVENOUS
     Route: 042
  3. ACETAMINOPHEN [Concomitant]
  4. FENISTIL (DIMETINDENE MALEATE) [Concomitant]
  5. PREDNISOLONE [Concomitant]
  6. GRANISETRON HCL [Concomitant]

REACTIONS (1)
  - NEUROBORRELIOSIS [None]
